FAERS Safety Report 8240482-0 (Version None)
Quarter: 2012Q1

REPORT INFORMATION
  Report Type: 
  Country: None (occurrence: None)
  Receive Date: 20120328
  Receipt Date: 20120326
  Transmission Date: 20120608
  Serious: No
  Sender: FDA-Public Use
  Company Number: US-PFIZER INC-2012078172

PATIENT
  Sex: Male
  Weight: 38.549 kg

DRUGS (1)
  1. GENOTROPIN [Suspect]
     Indication: GROWTH RETARDATION
     Dosage: 0.6 MG, 1X/DAY
     Dates: start: 20120323

REACTIONS (1)
  - INJECTION SITE HAEMORRHAGE [None]
